FAERS Safety Report 4317338-9 (Version None)
Quarter: 2004Q1

REPORT INFORMATION
  Report Type: 
  Country: None (occurrence: None)
  Receive Date: 20040312
  Receipt Date: 20040227
  Transmission Date: 20041129
  Serious: Yes (Hospitalization)
  Sender: FDA-Public Use
  Company Number: A-CH2004-05290

PATIENT
  Age: 19 Year
  Sex: Female
  Weight: 49 kg

DRUGS (9)
  1. TRACLEER [Suspect]
     Indication: PULMONARY HYPERTENSION
     Dosage: SEE IMAGE
     Route: 048
     Dates: start: 20030922, end: 20031019
  2. TRACLEER [Suspect]
     Indication: PULMONARY HYPERTENSION
     Dosage: SEE IMAGE
     Route: 048
     Dates: start: 20031020, end: 20031110
  3. FLOLAN (EPOPROSTENOL) [Concomitant]
  4. COUMADIN [Concomitant]
  5. LASIX [Concomitant]
  6. PREDNISONE [Concomitant]
  7. FOLIC ACID [Concomitant]
  8. CACIT D3 (CALCIUM CARBONATE) [Concomitant]
  9. POTASSIUM CHLORIDE [Concomitant]

REACTIONS (17)
  - CATHETER RELATED INFECTION [None]
  - CHEST PAIN [None]
  - CHOLECYSTITIS ACUTE [None]
  - CONDITION AGGRAVATED [None]
  - CORYNEBACTERIUM INFECTION [None]
  - CYTOLYTIC HEPATITIS [None]
  - DILATATION VENTRICULAR [None]
  - DRUG INEFFECTIVE [None]
  - DRUG TOLERANCE DECREASED [None]
  - ENDOCARDITIS [None]
  - HEADACHE [None]
  - HEPARIN-INDUCED THROMBOCYTOPENIA [None]
  - HYPOKINESIA [None]
  - INFLAMMATION [None]
  - PALPITATIONS [None]
  - PULMONARY HYPERTENSION [None]
  - TRICUSPID VALVE INCOMPETENCE [None]
